FAERS Safety Report 6483530-0 (Version None)
Quarter: 2009Q4

REPORT INFORMATION
  Report Type: 
  Country: None (occurrence: None)
  Receive Date: 20091209
  Receipt Date: 20091202
  Transmission Date: 20100525
  Serious: Yes (Other)
  Sender: FDA-Public Use
  Company Number: JP-ROCHE-595829

PATIENT
  Sex: Female
  Weight: 46 kg

DRUGS (19)
  1. BEVACIZUMAB [Suspect]
     Indication: BREAST CANCER RECURRENT
     Dosage: ROUTE: INTRAVENOUS (NOT OTHERWISE SPECIFIED).
     Route: 042
     Dates: start: 20071015, end: 20080526
  2. BEVACIZUMAB [Suspect]
     Route: 042
     Dates: start: 20081117, end: 20090805
  3. BEVACIZUMAB [Suspect]
     Route: 042
     Dates: end: 20090831
  4. PACLITAXEL [Suspect]
     Indication: BREAST CANCER RECURRENT
     Dosage: ROUTE: INTRAVENOUS (NOT OTHERWISE SPECIFIED); NOTE: THREE ONE YAS
     Route: 042
     Dates: start: 20071015, end: 20080526
  5. PACLITAXEL [Suspect]
     Route: 042
     Dates: start: 20081117
  6. ZOMETA [Suspect]
     Indication: METASTASES TO BONE
     Dosage: ROUTE: INJECTABLE (NOT OTHERWISE SPECIFIED)
     Route: 050
     Dates: start: 20060828, end: 20080825
  7. KENALOG [Concomitant]
     Indication: STOMATITIS
     Dosage: NOTE: SINGLE USE AND PROPER QUANTITIY
     Route: 061
     Dates: start: 20071211
  8. AMLODIN [Concomitant]
     Dosage: DRUG REPORTED AS AMLODIN OD
     Route: 048
     Dates: start: 20071226
  9. LENDORMIN [Concomitant]
     Dosage: SINGLE USE (BEFORE IT SLEEPS); DRUG REPORTED AS LENDORMIN D
     Route: 048
  10. KETOPROFEN [Concomitant]
     Dosage: DOSE FORM: TAPE; SINGLE USE; DRUG REPORTED AS MILTAX
     Route: 061
  11. MUCOSTA [Concomitant]
     Route: 048
     Dates: start: 20080407
  12. OXYTETRACYCLINE HYDROCHLORIDE [Concomitant]
     Dosage: DRUG REPORTED AS TERRA CORTRIL; PROPER QUANTITY
     Route: 061
     Dates: start: 20080303
  13. MAGMITT [Concomitant]
     Dosage: SINGLE USE
     Route: 048
     Dates: start: 20080122
  14. GLYCYRON [Concomitant]
     Route: 048
  15. DIPHENHYDRAMINE HCL [Concomitant]
     Dosage: DRUG REPORTED AS RESTAMIN KOWA
     Route: 048
     Dates: start: 20071015
  16. DEXART [Concomitant]
     Dosage: ROUTE: INTRAVENOUS (NOT OTHERWISE SPECIFIED)
     Route: 042
     Dates: start: 20071015, end: 20071015
  17. DEXART [Concomitant]
     Route: 042
     Dates: start: 20071029
  18. ZANTAC [Concomitant]
     Dosage: ROUTE: INTRAVENOUS (NOT OTHERWISE SPECIFIED)
     Route: 042
     Dates: start: 20071015
  19. KYTRIL [Concomitant]
     Dosage: ROUTE: INTRAVENOUS (NOT OTHERWISE SPECIFEID)
     Route: 042
     Dates: start: 20071015

REACTIONS (1)
  - OSTEITIS [None]
